FAERS Safety Report 24000471 (Version 1)
Quarter: 2024Q2

REPORT INFORMATION
  Report Type: Report from Study
  Country: KR (occurrence: KR)
  Receive Date: 20240621
  Receipt Date: 20240621
  Transmission Date: 20240716
  Serious: Yes (Hospitalization, Other)
  Sender: FDA-Public Use
  Company Number: KR-PHARMAMAR-2024PM000104

PATIENT
  Age: 67 Year
  Sex: Male
  Weight: 85 kg

DRUGS (14)
  1. LURBINECTEDIN [Suspect]
     Active Substance: LURBINECTEDIN
     Indication: Small cell lung cancer
     Dosage: 3.2 MILLIGRAM/SQ. METER, Q3W
     Route: 042
     Dates: start: 20231219, end: 20231219
  2. LURBINECTEDIN [Suspect]
     Active Substance: LURBINECTEDIN
     Dosage: 3.2 MILLIGRAM/SQ. METER, Q3W
     Route: 042
     Dates: start: 20240110
  3. DEXAMETHASONE [Concomitant]
     Active Substance: DEXAMETHASONE
     Indication: Vomiting
     Dosage: UNK
     Dates: start: 20230119, end: 20240110
  4. ONDANSETRON HYDROCHLORIDE [Concomitant]
     Active Substance: ONDANSETRON HYDROCHLORIDE
     Indication: Vomiting
     Dosage: UNK
     Dates: start: 20231219, end: 20231229
  5. ERDOSTEINE [Concomitant]
     Active Substance: ERDOSTEINE
     Indication: Chronic obstructive pulmonary disease
     Dosage: UNK
     Dates: start: 20231116
  6. LEVODROPROPIZINE [Concomitant]
     Active Substance: LEVODROPROPIZINE
     Indication: Chronic obstructive pulmonary disease
     Dosage: UNK
     Dates: start: 20231116
  7. SYNATURA [Concomitant]
     Indication: Chronic obstructive pulmonary disease
     Dosage: UNK
     Dates: start: 20231116, end: 20231229
  8. FENTANYL CITRATE [Concomitant]
     Active Substance: FENTANYL CITRATE
     Indication: Chronic obstructive pulmonary disease
     Dosage: UNK
     Dates: start: 20231218, end: 20231229
  9. DUTASTERIDE [Concomitant]
     Active Substance: DUTASTERIDE
     Indication: Benign prostatic hyperplasia
     Dosage: UNK
     Dates: start: 20231207
  10. TRAMADOL HYDROCHLORIDE [Concomitant]
     Active Substance: TRAMADOL HYDROCHLORIDE
     Indication: Chronic obstructive pulmonary disease
     Dosage: UNK
     Dates: start: 20231207, end: 20231229
  11. VILANTEROL TRIFENATATE [Concomitant]
     Active Substance: VILANTEROL TRIFENATATE
     Indication: Chronic obstructive pulmonary disease
  12. TAMSULOSIN HYDROCHLORIDE [Concomitant]
     Active Substance: TAMSULOSIN HYDROCHLORIDE
     Indication: Benign prostatic hyperplasia
  13. ACETAMINOPHEN [Concomitant]
     Active Substance: ACETAMINOPHEN
     Indication: Chronic obstructive pulmonary disease
  14. UMECLIDINIUM BROMIDE [Concomitant]
     Active Substance: UMECLIDINIUM BROMIDE
     Indication: Chronic obstructive pulmonary disease

REACTIONS (1)
  - Syncope [Recovered/Resolved]

NARRATIVE: CASE EVENT DATE: 20231221
